FAERS Safety Report 18335286 (Version 1)
Quarter: 2020Q4

REPORT INFORMATION
  Report Type: Report from Study
  Country: BR (occurrence: BR)
  Receive Date: 20201001
  Receipt Date: 20201001
  Transmission Date: 20210113
  Serious: Yes (Life-Threatening, Other)
  Sender: FDA-Public Use
  Company Number: NVSC2020BR265246

PATIENT
  Age: 45 Year
  Sex: Male

DRUGS (3)
  1. ENTRESTO [Suspect]
     Active Substance: SACUBITRIL\VALSARTAN
     Dosage: (97/103 MG HALF TABLET ONE IN MORNING AND 1 IN EVENING)
     Route: 065
  2. ENTRESTO [Suspect]
     Active Substance: SACUBITRIL\VALSARTAN
     Indication: PRODUCT USED FOR UNKNOWN INDICATION
     Dosage: 0.5 DF
     Route: 065
     Dates: start: 202007
  3. FUROSEMIDE. [Concomitant]
     Active Substance: FUROSEMIDE
     Indication: DYSURIA
     Dosage: 2 DF, QD
     Route: 065

REACTIONS (9)
  - Fatigue [Unknown]
  - Drug ineffective [Unknown]
  - Near death experience [Unknown]
  - Wrong technique in product usage process [Unknown]
  - Intracardiac thrombus [Unknown]
  - Cardiac failure [Unknown]
  - Peripheral swelling [Unknown]
  - Ischaemia [Unknown]
  - Swelling [Unknown]

NARRATIVE: CASE EVENT DATE: 202007
